FAERS Safety Report 17152117 (Version 2)
Quarter: 2020Q3

REPORT INFORMATION
  Report Type: Spontaneous
  Country: IN (occurrence: IN)
  Receive Date: 20191213
  Receipt Date: 20200929
  Transmission Date: 20201102
  Serious: Yes (Other)
  Sender: FDA-Public Use
  Company Number: IN-JUBILANT CADISTA PHARMACEUTICALS-2019JUB00448

PATIENT
  Age: 36 Year
  Sex: Male

DRUGS (4)
  1. PANTOPRAZOLE SODIUM. [Suspect]
     Active Substance: PANTOPRAZOLE SODIUM
     Indication: DYSPEPSIA
     Dosage: 40 MG, 1X/DAY
     Route: 065
  2. TRIPLE IMMUNOSUPPRESSION ? UNSPECIFIED (INCLUDED CYCLOSPORINE) [Concomitant]
     Route: 065
  3. AMLODIPINE [Concomitant]
     Active Substance: AMLODIPINE BESYLATE
     Route: 065
  4. ATENOLOL. [Concomitant]
     Active Substance: ATENOLOL
     Route: 065

REACTIONS (1)
  - Tubulointerstitial nephritis [Recovered/Resolved]
